FAERS Safety Report 4407567-8 (Version None)
Quarter: 2004Q3

REPORT INFORMATION
  Report Type: 
  Country: None (occurrence: None)
  Receive Date: 20040721
  Receipt Date: 20040709
  Transmission Date: 20050211
  Serious: Yes (Death)
  Sender: FDA-Public Use
  Company Number: EGEL00204002325

PATIENT
  Age: 59 Year
  Sex: Female

DRUGS (1)
  1. ESTROGEL [Suspect]
     Indication: HORMONE REPLACEMENT THERAPY
     Dosage: DAILY TD
     Route: 062

REACTIONS (10)
  - ATELECTASIS [None]
  - BREAST CANCER [None]
  - CARDIOPULMONARY FAILURE [None]
  - LYMPHADENOPATHY [None]
  - METASTASES TO CENTRAL NERVOUS SYSTEM [None]
  - METASTASES TO LIVER [None]
  - METASTASES TO LUNG [None]
  - PLEURAL EFFUSION [None]
  - PLEURAL NEOPLASM [None]
  - PROGESTERONE RECEPTOR ASSAY POSITIVE [None]
